FAERS Safety Report 21459493 (Version 1)
Quarter: 2022Q4

REPORT INFORMATION
  Report Type: Spontaneous
  Country: TW (occurrence: TW)
  Receive Date: 20221014
  Receipt Date: 20221014
  Transmission Date: 20230113
  Serious: Yes (Hospitalization)
  Sender: FDA-Public Use
  Company Number: TW-MYLANLABS-2022M1114134

PATIENT
  Age: 33 Year
  Sex: Female

DRUGS (12)
  1. PACLITAXEL [Suspect]
     Active Substance: PACLITAXEL
     Indication: Adrenocortical carcinoma
     Dosage: UNK, CYCLE, FOUR CYCLES OVER 3 MONTHS
     Route: 065
  2. PACLITAXEL [Suspect]
     Active Substance: PACLITAXEL
     Indication: Metastatic neoplasm
  3. CISPLATIN [Suspect]
     Active Substance: CISPLATIN
     Indication: Adrenocortical carcinoma
     Dosage: UNK
     Route: 065
  4. CISPLATIN [Suspect]
     Active Substance: CISPLATIN
     Indication: Metastatic neoplasm
  5. FLUOROURACIL [Suspect]
     Active Substance: FLUOROURACIL
     Indication: Adrenocortical carcinoma
     Dosage: UNK, CYCLE, FOUR CYCLES OVER 3 MONTHS
     Route: 065
  6. FLUOROURACIL [Suspect]
     Active Substance: FLUOROURACIL
     Indication: Metastatic neoplasm
  7. CARBOPLATIN [Suspect]
     Active Substance: CARBOPLATIN
     Indication: Adrenocortical carcinoma
     Dosage: UNK, CYCLE, FOUR CYCLES OVER 3 MONTHS
     Route: 065
  8. CARBOPLATIN [Suspect]
     Active Substance: CARBOPLATIN
     Indication: Metastatic neoplasm
  9. MITOTANE [Suspect]
     Active Substance: MITOTANE
     Indication: Adrenocortical carcinoma
     Dosage: 500 MILLIGRAM, BID
     Route: 065
  10. MITOTANE [Suspect]
     Active Substance: MITOTANE
     Indication: Metastatic neoplasm
     Dosage: 500 MILLIGRAM, QD, LOW-DOSE
     Route: 065
  11. CORTISONE ACETATE [Suspect]
     Active Substance: CORTISONE ACETATE
     Indication: Adrenocortical carcinoma
     Dosage: 12.5 MILLIGRAM, BID
     Route: 065
  12. CORTISONE ACETATE [Suspect]
     Active Substance: CORTISONE ACETATE
     Indication: Metastatic neoplasm

REACTIONS (1)
  - Drug ineffective [Unknown]
